FAERS Safety Report 5880458-1 (Version None)
Quarter: 2008Q3

REPORT INFORMATION
  Report Type: 
  Country: None (occurrence: None)
  Receive Date: 20080912
  Receipt Date: 20080707
  Transmission Date: 20090109
  Serious: No
  Sender: FDA-Public Use
  Company Number: US-ABBOTT-08P-163-0451002-00

PATIENT
  Sex: Female
  Weight: 48.578 kg

DRUGS (8)
  1. HUMIRA [Suspect]
     Indication: CROHN'S DISEASE
     Route: 058
     Dates: start: 20080301
  2. HUMIRA [Suspect]
     Route: 058
  3. HUMIRA [Suspect]
     Route: 058
  4. HUMIRA [Suspect]
     Dates: start: 20080425, end: 20080523
  5. HUMIRA [Suspect]
     Dates: start: 20080530
  6. CETIRIZINE HYDROCHLORIDE [Concomitant]
     Indication: HYPERSENSITIVITY
     Route: 048
  7. LORTAB [Concomitant]
     Indication: PAIN
     Route: 048
  8. ACETAMINOPHEN [Concomitant]
     Indication: PAIN
     Route: 048

REACTIONS (9)
  - EPISTAXIS [None]
  - HAEMORRHAGE [None]
  - INJECTION SITE ERYTHEMA [None]
  - INJECTION SITE PRURITUS [None]
  - INJECTION SITE SWELLING [None]
  - LABORATORY TEST ABNORMAL [None]
  - SINUS CONGESTION [None]
  - SINUS HEADACHE [None]
  - TOOTHACHE [None]
